FAERS Safety Report 9779076 (Version 1)
Quarter: 2013Q4

REPORT INFORMATION
  Report Type: Spontaneous
  Country: CL (occurrence: CL)
  Receive Date: 20131223
  Receipt Date: 20131223
  Transmission Date: 20140711
  Serious: Yes (Other)
  Sender: FDA-Public Use
  Company Number: CL-PFIZER INC-2013363492

PATIENT
  Sex: Female

DRUGS (2)
  1. XALATAN [Suspect]
     Dosage: UNK
     Route: 047
     Dates: start: 200909, end: 201109
  2. ENALAPRIL [Concomitant]

REACTIONS (2)
  - Visual acuity reduced [Recovered/Resolved]
  - Cardiac disorder [Not Recovered/Not Resolved]
